FAERS Safety Report 21967565 (Version 1)
Quarter: 2023Q1

REPORT INFORMATION
  Report Type: Spontaneous
  Country: ES (occurrence: ES)
  Receive Date: 20230208
  Receipt Date: 20230208
  Transmission Date: 20230417
  Serious: Yes (Life-Threatening, Hospitalization, Other)
  Sender: FDA-Public Use
  Company Number: None

PATIENT
  Age: 30 Year
  Sex: Male

DRUGS (5)
  1. VINCRISTINE SULFATE [Suspect]
     Active Substance: VINCRISTINE SULFATE
     Indication: Primary mediastinal large B-cell lymphoma stage IV
     Dosage: UNK
     Route: 042
     Dates: start: 20220907
  2. DOXORUBICIN HYDROCHLORIDE [Suspect]
     Active Substance: DOXORUBICIN HYDROCHLORIDE
     Indication: Primary mediastinal large B-cell lymphoma stage IV
     Dosage: UNK
     Route: 042
     Dates: start: 20220907
  3. ETOPOSIDE [Suspect]
     Active Substance: ETOPOSIDE
     Indication: Primary mediastinal large B-cell lymphoma stage IV
     Dosage: UNK
     Route: 042
     Dates: start: 20220907
  4. CYCLOPHOSPHAMIDE [Suspect]
     Active Substance: CYCLOPHOSPHAMIDE
     Indication: Primary mediastinal large B-cell lymphoma stage IV
     Dosage: UNK
     Route: 042
     Dates: start: 20220907
  5. MABTHERA [Concomitant]
     Active Substance: RITUXIMAB
     Indication: Primary mediastinal large B-cell lymphoma stage IV
     Dosage: UNK (2 VIALS OF 10 ML)
     Route: 042
     Dates: start: 20220907

REACTIONS (1)
  - Pancytopenia [Recovered/Resolved]

NARRATIVE: CASE EVENT DATE: 20220920
